FAERS Safety Report 19184080 (Version 1)
Quarter: 2021Q2

REPORT INFORMATION
  Report Type: Spontaneous
  Country: US (occurrence: US)
  Receive Date: 20210427
  Receipt Date: 20210427
  Transmission Date: 20210717
  Serious: Yes (Hospitalization, Other)
  Sender: FDA-Public Use
  Company Number: US-APOTEX-2021AP010042

PATIENT
  Age: 31 Year
  Sex: Male

DRUGS (2)
  1. GABAPENTIN. [Suspect]
     Active Substance: GABAPENTIN
     Indication: BACK PAIN
     Dosage: UNK
     Route: 065
  2. GABAPENTIN. [Suspect]
     Active Substance: GABAPENTIN
     Dosage: 36 GRAMS PER DAY
     Route: 065

REACTIONS (9)
  - Drug use disorder [Unknown]
  - Extra dose administered [Unknown]
  - Pyrexia [Unknown]
  - Asthenia [Unknown]
  - Insomnia [Unknown]
  - Myalgia [Unknown]
  - Drug dependence [Unknown]
  - Drug withdrawal syndrome [Unknown]
  - Seizure [Unknown]
